FAERS Safety Report 23944815 (Version 1)
Quarter: 2024Q2

REPORT INFORMATION
  Report Type: Spontaneous
  Country: CA (occurrence: CA)
  Receive Date: 20240606
  Receipt Date: 20240606
  Transmission Date: 20240715
  Serious: Yes (Disabling)
  Sender: FDA-Public Use
  Company Number: CA-TEVA-VS-3204070

PATIENT
  Age: 74 Year
  Sex: Female

DRUGS (1)
  1. HYDROMORPHONE [Suspect]
     Active Substance: HYDROMORPHONE
     Indication: Pain
     Route: 048

REACTIONS (5)
  - Feeling abnormal [Unknown]
  - Crying [Unknown]
  - Disorganised speech [Unknown]
  - Frustration tolerance decreased [Unknown]
  - Mydriasis [Unknown]
